FAERS Safety Report 9682047 (Version 2)
Quarter: 2013Q4

REPORT INFORMATION
  Report Type: Spontaneous
  Country: US (occurrence: US)
  Receive Date: 20131111
  Receipt Date: 20131111
  Transmission Date: 20140711
  Serious: No
  Sender: FDA-Public Use
  Company Number: US-BAXTER-2013BAX043501

PATIENT
  Sex: Female
  Weight: 99.88 kg

DRUGS (1)
  1. GAMMAGARD S/D [Suspect]
     Indication: IMMUNODEFICIENCY COMMON VARIABLE
     Dosage: OFF LABEL USE FOR ROUTE
     Route: 058

REACTIONS (1)
  - Protein C deficiency [Unknown]
